FAERS Safety Report 5192012-8 (Version None)
Quarter: 2006Q4

REPORT INFORMATION
  Report Type: 
  Country: None (occurrence: None)
  Receive Date: 20061220
  Receipt Date: 20061220
  Transmission Date: 20070319
  Serious: Yes (Life-Threatening)
  Sender: FDA-Public Use
  Company Number: None

PATIENT
  Age: 63 Year
  Sex: Female
  Weight: 103.8737 kg

DRUGS (6)
  1. MORPHINE [Suspect]
     Indication: PAIN
     Dosage: 38 MG PER PCA (TOTAL)
     Dates: start: 20060817, end: 20060818
  2. KEFLEX [Concomitant]
  3. MORPHINE [Concomitant]
  4. LOTENSIN [Concomitant]
  5. NEURONTIN [Concomitant]
  6. OXYBUTYNIN [Concomitant]

REACTIONS (4)
  - DRUG INEFFECTIVE [None]
  - HYPOXIA [None]
  - MENTAL STATUS CHANGES POSTOPERATIVE [None]
  - SEDATION [None]
